FAERS Safety Report 9768947 (Version 2)
Quarter: 2014Q1

REPORT INFORMATION
  Report Type: Report from Study
  Country: US (occurrence: US)
  Receive Date: 20131218
  Receipt Date: 20140120
  Transmission Date: 20141002
  Serious: Yes (Other)
  Sender: FDA-Public Use
  Company Number: US-ROCHE-1314403

PATIENT
  Sex: Male

DRUGS (15)
  1. AVASTIN [Suspect]
     Indication: DIABETIC RETINOPATHY
     Route: 050
     Dates: start: 20101130
  2. AVASTIN [Suspect]
     Indication: DIABETIC RETINAL OEDEMA
     Route: 050
     Dates: start: 20130822
  3. LUCENTIS [Suspect]
     Indication: PRODUCT USED FOR UNKNOWN INDICATION
     Route: 065
     Dates: start: 20140108
  4. ACETAMINOPHEN/CODEINE [Suspect]
     Indication: PRODUCT USED FOR UNKNOWN INDICATION
     Route: 048
  5. FUROSEMIDE [Concomitant]
     Route: 065
  6. IBUPROFEN [Concomitant]
     Route: 048
  7. KLOR-CON M20 [Concomitant]
     Route: 048
  8. LEVEMIR [Concomitant]
     Dosage: 100 UNITS PER ML
     Route: 058
  9. LISINOPRIL [Concomitant]
     Route: 065
  10. NOVOLOG [Concomitant]
     Dosage: 100 UNITS PER ML
     Route: 058
  11. SILVER SULFADIAZINE CREAM [Concomitant]
     Route: 061
  12. SODIUM CHLORIDE [Concomitant]
     Dosage: 0.9% IRRIGATION
     Route: 065
  13. SYNTHROID [Concomitant]
     Route: 065
  14. BETADINE [Concomitant]
     Route: 065
  15. LIDOCAINE [Concomitant]
     Route: 065

REACTIONS (20)
  - Cystoid macular oedema [Unknown]
  - Photopsia [Unknown]
  - Metamorphopsia [Unknown]
  - Vitreous floaters [Unknown]
  - Arthralgia [Unknown]
  - Joint stiffness [Unknown]
  - Skin ulcer [Unknown]
  - Pupillary reflex impaired [Unknown]
  - Retinal exudates [Unknown]
  - Cataract subcapsular [Unknown]
  - Macular fibrosis [Unknown]
  - Retinal vascular disorder [Unknown]
  - Ophthalmological examination abnormal [Unknown]
  - Cataract nuclear [Unknown]
  - Visual acuity reduced [Unknown]
  - Eye pain [Unknown]
  - Vision blurred [Unknown]
  - Diabetic retinopathy [Unknown]
  - Ischaemia [Unknown]
  - Macular pseudohole [Unknown]
